FAERS Safety Report 6833916-7 (Version None)
Quarter: 2010Q3

REPORT INFORMATION
  Report Type: 
  Country: None (occurrence: None)
  Receive Date: 20100712
  Receipt Date: 20070406
  Transmission Date: 20110219
  Serious: No
  Sender: FDA-Public Use
  Company Number: US-PFIZER INC-2007028400

PATIENT
  Sex: Male
  Weight: 91.63 kg

DRUGS (17)
  1. CHANTIX [Suspect]
     Indication: SMOKING CESSATION THERAPY
     Dates: start: 20070328
  2. SERTRALINE HCL [Concomitant]
  3. TAMSULOSIN HYDROCHLORIDE [Concomitant]
  4. FERROUS GLUCONATE [Concomitant]
  5. VITAMINS [Concomitant]
  6. METOPROLOL [Concomitant]
  7. ALLEGRA D 24 HOUR [Concomitant]
  8. PROTONIX [Concomitant]
  9. WARFARIN SODIUM [Concomitant]
  10. FUROSEMIDE [Concomitant]
  11. GABAPENTIN [Concomitant]
  12. SMZ-TMP DS [Concomitant]
  13. ACYCLOVIR [Concomitant]
  14. ACETYLSALICYLIC ACID [Concomitant]
  15. ALL OTHER THERAPEUTIC PRODUCTS [Concomitant]
  16. VIREAD [Concomitant]
  17. VIRAMUNE [Concomitant]

REACTIONS (3)
  - NAUSEA [None]
  - NERVOUSNESS [None]
  - VOMITING [None]
